FAERS Safety Report 4866825-3 (Version None)
Quarter: 2005Q4

REPORT INFORMATION
  Report Type: 
  Country: None (occurrence: None)
  Receive Date: 20051222
  Receipt Date: 20051215
  Transmission Date: 20060501
  Serious: Yes (Hospitalization)
  Sender: FDA-Public Use
  Company Number: DE-2005-022580

PATIENT
  Age: 41 Year
  Sex: Female
  Weight: 57 kg

DRUGS (1)
  1. MIRENA [Suspect]
     Indication: CONTRACEPTION
     Dosage: 20 UG/DAY, CONT, INTRA-UTERINE
     Route: 015
     Dates: start: 20050609, end: 20051215

REACTIONS (7)
  - ANXIETY [None]
  - DEAFNESS [None]
  - DEPRESSED MOOD [None]
  - DEPRESSION [None]
  - INSOMNIA [None]
  - RESTLESSNESS [None]
  - TINNITUS [None]
